FAERS Safety Report 21250251 (Version 1)
Quarter: 2022Q3

REPORT INFORMATION
  Report Type: Spontaneous
  Country: US (occurrence: None)
  Receive Date: 20220823
  Receipt Date: 20220823
  Transmission Date: 20221027
  Serious: Yes (Hospitalization)
  Sender: FDA-Public Use
  Company Number: None

PATIENT
  Sex: Female

DRUGS (2)
  1. TRIKAFTA [Suspect]
     Active Substance: ELEXACAFTOR\IVACAFTOR\TEZACAFTOR
     Route: 055
     Dates: start: 20211231
  2. PULMOZYME [Suspect]
     Active Substance: DORNASE ALFA
     Indication: Cystic fibrosis
     Dosage: 2.5MG/2.5ML INHALATION?INHALE 2.5 ML INTO THE LUNGS VIA NEBULIZER DAILY.
     Route: 055
     Dates: start: 20211231

REACTIONS (1)
  - Liver injury [None]
